FAERS Safety Report 9447835 (Version 1)
Quarter: 2013Q3

REPORT INFORMATION
  Report Type: Spontaneous
  Country: CH (occurrence: None)
  Receive Date: 20130805
  Receipt Date: 20130805
  Transmission Date: 20140515
  Serious: Yes (Life-Threatening)
  Sender: FDA-Public Use
  Company Number: CH-ALKEM-000111

PATIENT
  Age: 52 Year
  Sex: Female

DRUGS (2)
  1. MYCOPHENOLATE MOFETIL (MYCOPHENOLATE MOFETIL) [Suspect]
     Indication: MYOCARDITIS
  2. SIROLIMUS [Suspect]
     Indication: MYOCARDITIS

REACTIONS (11)
  - Colitis ulcerative [None]
  - Cytomegalovirus infection [None]
  - Epstein-Barr virus infection [None]
  - Weight decreased [None]
  - Asthenia [None]
  - Hypoalbuminaemia [None]
  - Hypophosphataemia [None]
  - Hypokalaemia [None]
  - Colitis erosive [None]
  - Toxicity to various agents [None]
  - Off label use [None]
